FAERS Safety Report 12633466 (Version 1)
Quarter: 2016Q3

REPORT INFORMATION
  Report Type: Spontaneous
  Country: US (occurrence: US)
  Receive Date: 20160809
  Receipt Date: 20160809
  Transmission Date: 20161109
  Serious: Yes (Other)
  Sender: FDA-Public Use
  Company Number: US-TEVA-682533ACC

PATIENT
  Sex: Female

DRUGS (1)
  1. PLAN B ONE-STEP [Suspect]
     Active Substance: LEVONORGESTREL
     Indication: MENSTRUATION DELAYED
     Dates: start: 20160723, end: 20160723

REACTIONS (5)
  - Pregnancy after post coital contraception [Unknown]
  - Intentional product misuse [Unknown]
  - Menstruation delayed [Not Recovered/Not Resolved]
  - Exposure during pregnancy [Unknown]
  - Intentional product use issue [Unknown]

NARRATIVE: CASE EVENT DATE: 20160723
